FAERS Safety Report 4526950-3 (Version None)
Quarter: 2004Q4

REPORT INFORMATION
  Report Type: 
  Country: None (occurrence: None)
  Receive Date: 20041207
  Receipt Date: 20041119
  Transmission Date: 20050328
  Serious: Yes (Death)
  Sender: FDA-Public Use
  Company Number: 240637

PATIENT
  Sex: Male

DRUGS (1)
  1. NOVOSEVEN [Suspect]
     Indication: AORTIC ANEURYSM
     Dosage: INTRAVENOUS
     Route: 042
     Dates: start: 20041101, end: 20041101

REACTIONS (1)
  - DEATH [None]
